FAERS Safety Report 11004077 (Version 1)
Quarter: 2015Q2

REPORT INFORMATION
  Report Type: Spontaneous
  Country: US (occurrence: None)
  Receive Date: 20150408
  Receipt Date: 20150408
  Transmission Date: 20150821
  Serious: No
  Sender: FDA-Public Use
  Company Number: None

PATIENT
  Age: 41 Year
  Sex: Male
  Weight: 124.74 kg

DRUGS (12)
  1. XYZAL [Concomitant]
     Active Substance: LEVOCETIRIZINE DIHYDROCHLORIDE
  2. PROAIR HFA [Concomitant]
     Active Substance: ALBUTEROL SULFATE
  3. EXCEDRINE [Concomitant]
  4. PAXIL [Concomitant]
     Active Substance: PAROXETINE HYDROCHLORIDE
  5. LORATADINE. [Concomitant]
     Active Substance: LORATADINE
  6. OXYCODONE [Suspect]
     Active Substance: OXYCODONE
     Indication: BACK PAIN
     Dosage: 1 PILL THREE TIMES DAILY TAKEN BY MOUTH
     Route: 048
  7. OXYCODONE [Suspect]
     Active Substance: OXYCODONE
     Indication: INTERVERTEBRAL DISC PROTRUSION
     Dosage: 1 PILL THREE TIMES DAILY TAKEN BY MOUTH
     Route: 048
  8. QNASL [Concomitant]
     Active Substance: BECLOMETHASONE DIPROPIONATE
  9. SUDAFED [Concomitant]
     Active Substance: PSEUDOEPHEDRINE HYDROCHLORIDE
  10. BENADRYL [Concomitant]
     Active Substance: DIPHENHYDRAMINE HYDROCHLORIDE
  11. OXYCODONE [Concomitant]
     Active Substance: OXYCODONE
  12. IBUPROFEN. [Concomitant]
     Active Substance: IBUPROFEN

REACTIONS (3)
  - Drug effect decreased [None]
  - Product quality issue [None]
  - Product substitution issue [None]

NARRATIVE: CASE EVENT DATE: 20150317
